FAERS Safety Report 6718649-X (Version None)
Quarter: 2010Q2

REPORT INFORMATION
  Report Type: 
  Country: None (occurrence: None)
  Receive Date: 20100504
  Receipt Date: 20100317
  Transmission Date: 20101027
  Serious: Yes (Hospitalization)
  Sender: FDA-Public Use
  Company Number: 230217J10GBR

PATIENT
  Sex: Female

DRUGS (2)
  1. REBIF [Suspect]
     Dosage: 44, 3 IN 1 WK, SUBCUTANEOUS
     Route: 058
     Dates: start: 20040101, end: 20100101
  2. REBIF [Suspect]
     Dosage: 44, 3 IN 1 WK, SUBCUTANEOUS
     Route: 058
     Dates: start: 20100101

REACTIONS (4)
  - CONTUSION [None]
  - DIZZINESS [None]
  - DRUG DOSE OMISSION [None]
  - PAIN [None]
